FAERS Safety Report 9381356 (Version 1)
Quarter: 2013Q3

REPORT INFORMATION
  Report Type: Spontaneous
  Country: US (occurrence: US)
  Receive Date: 20130703
  Receipt Date: 20130703
  Transmission Date: 20140515
  Serious: No
  Sender: FDA-Public Use
  Company Number: US-MYLANLABS-2013S1011755

PATIENT
  Age: 50 Year
  Sex: Male

DRUGS (1)
  1. ETOMIDATE INJECTION USP [Suspect]
     Indication: SEDATION
     Route: 042
     Dates: start: 20130524, end: 20130524

REACTIONS (1)
  - Drug ineffective [Recovered/Resolved]
